FAERS Safety Report 21656869 (Version 1)
Quarter: 2022Q4

REPORT INFORMATION
  Report Type: Spontaneous
  Country: US (occurrence: None)
  Receive Date: 20221128
  Receipt Date: 20221128
  Transmission Date: 20230112
  Serious: Yes (Other)
  Sender: FDA-Public Use
  Company Number: None

PATIENT
  Age: 64 Year
  Sex: Male
  Weight: 95.25 kg

DRUGS (2)
  1. DEFINITY [Suspect]
     Active Substance: PERFLUTREN
     Indication: Echocardiogram
     Dates: start: 20221128, end: 20221128
  2. DEFINITY [Concomitant]
     Active Substance: PERFLUTREN
     Dates: start: 20221128, end: 20221128

REACTIONS (3)
  - Back pain [None]
  - Muscle spasms [None]
  - Discomfort [None]

NARRATIVE: CASE EVENT DATE: 20221128
